FAERS Safety Report 8125398-2 (Version None)
Quarter: 2012Q1

REPORT INFORMATION
  Report Type: 
  Country: None (occurrence: None)
  Receive Date: 20120209
  Receipt Date: 20120206
  Transmission Date: 20120608
  Serious: Yes (Death, Hospitalization, Other)
  Sender: FDA-Public Use
  Company Number: BR-BAYER-2011-074680

PATIENT
  Age: 65 Year
  Sex: Female

DRUGS (4)
  1. SORAFENIB (RAF KINASE INHIBITOR) [Suspect]
     Dosage: 200 MG, BID
     Route: 048
     Dates: start: 20110803
  2. SYRUP (UNKNOWN NAME) [Concomitant]
     Indication: COUGH
     Route: 048
  3. SORAFENIB (RAF KINASE INHIBITOR) [Suspect]
     Indication: HEPATIC NEOPLASM MALIGNANT
     Dosage: UNK
     Dates: start: 20110601
  4. SORAFENIB (RAF KINASE INHIBITOR) [Suspect]
     Dosage: 200 MG, BID
     Route: 048
     Dates: start: 20111101

REACTIONS (9)
  - DECREASED APPETITE [None]
  - IMMUNODEFICIENCY [None]
  - COMA HEPATIC [None]
  - ASTHENIA [None]
  - PNEUMONIA [None]
  - WOUND [None]
  - URINARY TRACT INFECTION [None]
  - RESPIRATORY FAILURE [None]
  - DIZZINESS [None]
